FAERS Safety Report 13543451 (Version 1)
Quarter: 2017Q2

REPORT INFORMATION
  Report Type: Report from Study
  Country: None (occurrence: US)
  Receive Date: 20170515
  Receipt Date: 20170515
  Transmission Date: 20170830
  Serious: Yes (Other)
  Sender: FDA-Public Use
  Company Number: US-ABBVIE-17K-163-1928111-00

PATIENT
  Sex: Female

DRUGS (4)
  1. HUMIRA [Suspect]
     Active Substance: ADALIMUMAB
     Indication: PSORIASIS
  2. HUMIRA [Suspect]
     Active Substance: ADALIMUMAB
     Indication: CROHN^S DISEASE
     Route: 058
     Dates: start: 20170228
  3. METHOTREXATE. [Concomitant]
     Active Substance: METHOTREXATE
     Indication: PRODUCT USED FOR UNKNOWN INDICATION
  4. METHOTREXATE. [Concomitant]
     Active Substance: METHOTREXATE
     Dosage: DOUBLED UP THE DOSE

REACTIONS (14)
  - Intestinal obstruction [Not Recovered/Not Resolved]
  - Paranasal sinus hypersecretion [Unknown]
  - Anxiety [Unknown]
  - Oedema peripheral [Recovered/Resolved]
  - Weight increased [Unknown]
  - Joint swelling [Unknown]
  - Arthralgia [Unknown]
  - Hypertension [Unknown]
  - Oedema peripheral [Recovering/Resolving]
  - Palpitations [Unknown]
  - Headache [Unknown]
  - Gastric infection [Not Recovered/Not Resolved]
  - Myalgia [Unknown]
  - Psoriasis [Not Recovered/Not Resolved]

NARRATIVE: CASE EVENT DATE: 2017
